FAERS Safety Report 13523383 (Version 2)
Quarter: 2017Q4

REPORT INFORMATION
  Report Type: Spontaneous
  Country: US (occurrence: US)
  Receive Date: 20170508
  Receipt Date: 20171207
  Transmission Date: 20180320
  Serious: No
  Sender: FDA-Public Use
  Company Number: US-VIFOR (INTERNATIONAL) INC.-VIT-2017-03097

PATIENT
  Sex: Female

DRUGS (23)
  1. ATORVASTATIN [Concomitant]
     Active Substance: ATORVASTATIN
  2. ERGOCALCIFEROL. [Concomitant]
     Active Substance: ERGOCALCIFEROL
  3. NEPRO [Concomitant]
     Active Substance: DIETARY SUPPLEMENT
  4. AMARYL [Concomitant]
     Active Substance: GLIMEPIRIDE
  5. PROCRIT [Concomitant]
     Active Substance: ERYTHROPOIETIN
  6. CALCIUM [Concomitant]
     Active Substance: CALCIUM
  7. IRON [Concomitant]
     Active Substance: IRON
  8. NIFEDIPINE. [Concomitant]
     Active Substance: NIFEDIPINE
  9. CELLCEPT [Concomitant]
     Active Substance: MYCOPHENOLATE MOFETIL\MYCOPHENOLATE MOFETIL HYDROCHLORIDE
     Route: 042
  10. LIPITOR [Concomitant]
     Active Substance: ATORVASTATIN CALCIUM
  11. LASIX [Concomitant]
     Active Substance: FUROSEMIDE
  12. METOPROLOL. [Concomitant]
     Active Substance: METOPROLOL
  13. TRAMADOL. [Concomitant]
     Active Substance: TRAMADOL
  14. VELTASSA [Suspect]
     Active Substance: PATIROMER
     Indication: HYPERKALAEMIA
     Route: 048
  15. METOPROLOL SUCCINATE. [Concomitant]
     Active Substance: METOPROLOL SUCCINATE
  16. NEURONTIN [Concomitant]
     Active Substance: GABAPENTIN
  17. CALCITRIOL. [Concomitant]
     Active Substance: CALCITRIOL
  18. MAGNESIUM OXIDE. [Concomitant]
     Active Substance: MAGNESIUM OXIDE
  19. TACROLIMUS. [Concomitant]
     Active Substance: TACROLIMUS
  20. ERGOCALCIFEROL. [Concomitant]
     Active Substance: ERGOCALCIFEROL
  21. OMEPRAZOLE. [Concomitant]
     Active Substance: OMEPRAZOLE
  22. OXYCODONE [Concomitant]
     Active Substance: OXYCODONE
  23. SODIUM BICARBONATE. [Concomitant]
     Active Substance: SODIUM BICARBONATE

REACTIONS (1)
  - Living in residential institution [Unknown]
